FAERS Safety Report 5804098-5 (Version None)
Quarter: 2008Q3

REPORT INFORMATION
  Report Type: 
  Country: None (occurrence: None)
  Receive Date: 20080709
  Receipt Date: 20080627
  Transmission Date: 20090109
  Serious: Yes (Hospitalization)
  Sender: FDA-Public Use
  Company Number: IT-ELI_LILLY_AND_COMPANY-IT200806001351

PATIENT
  Sex: Male
  Weight: 42 kg

DRUGS (4)
  1. ATOMOXETINE HCL [Suspect]
     Indication: ATTENTION DEFICIT/HYPERACTIVITY DISORDER
     Dosage: 40 MG, DAILY (1/D)
     Route: 048
     Dates: start: 20080521
  2. ATOMOXETINE HCL [Suspect]
     Dosage: 25 MG, DAILY (1/D)
     Route: 048
     Dates: start: 20080523
  3. ATOMOXETINE HCL [Suspect]
     Dosage: 50 MG, DAILY (1/D)
     Route: 048
     Dates: start: 20080528
  4. ATOMOXETINE HCL [Suspect]
     Dosage: 10 MG, DAILY (1/D)
     Route: 048
     Dates: start: 20080530, end: 20080530

REACTIONS (3)
  - DEHYDRATION [None]
  - IDIOSYNCRATIC DRUG REACTION [None]
  - VOMITING [None]
